FAERS Safety Report 11357154 (Version 1)
Quarter: 2015Q3

REPORT INFORMATION
  Report Type: Spontaneous
  Country: US (occurrence: US)
  Receive Date: 20150803
  Receipt Date: 20150803
  Transmission Date: 20151125
  Serious: No
  Sender: FDA-Public Use
  Company Number: US-ELI_LILLY_AND_COMPANY-US201309007982

PATIENT
  Age: 47 Year
  Sex: Female

DRUGS (1)
  1. STRATTERA [Suspect]
     Active Substance: ATOMOXETINE HYDROCHLORIDE
     Dosage: 60 MG, QD
     Route: 065

REACTIONS (6)
  - Drug ineffective [Unknown]
  - Disturbance in attention [Unknown]
  - Feeling abnormal [Unknown]
  - Mental impairment [Unknown]
  - Confusional state [Unknown]
  - Palpitations [Unknown]
